FAERS Safety Report 8932534 (Version 1)
Quarter: 2012Q4

REPORT INFORMATION
  Report Type: Spontaneous
  Country: US (occurrence: None)
  Receive Date: 20121126
  Receipt Date: 20121126
  Transmission Date: 20130627
  Serious: No
  Sender: FDA-Public Use
  Company Number: None

PATIENT
  Sex: Male
  Weight: 72.58 kg

DRUGS (1)
  1. BENDAMUSTINE 90MG/M2 X 1.84 = 166MG X 2 CEPHALON INC. [Suspect]
     Indication: MANTLE CELL LYMPHOMA
     Dosage: 163mg + 163mg day 1 IV; 163mg(163) day 2
     Route: 042
     Dates: start: 201107, end: 20111018

REACTIONS (3)
  - Fatigue [None]
  - Headache [None]
  - Dyspnoea [None]
